FAERS Safety Report 7360367-1 (Version None)
Quarter: 2011Q1

REPORT INFORMATION
  Report Type: 
  Country: None (occurrence: None)
  Receive Date: 20110318
  Receipt Date: 20101207
  Transmission Date: 20110831
  Serious: Yes (Other)
  Sender: FDA-Public Use
  Company Number: US-BAYER-2011-022525

PATIENT
  Sex: Female
  Weight: 90.249 kg

DRUGS (6)
  1. HYDROCODONE/ACETAMINOPHEN [Concomitant]
     Dosage: 5/500 TAB
     Route: 048
     Dates: start: 20061006
  2. OCELLA [Suspect]
     Indication: ORAL CONTRACEPTION
     Dosage: UNK
     Dates: start: 20090201, end: 20090301
  3. YASMIN [Suspect]
     Indication: ORAL CONTRACEPTION
     Dosage: UNK
     Dates: start: 20060701, end: 20090101
  4. TRIAMTERENE AND HYDROCHLOROTHIAZID [Concomitant]
     Dosage: 37.5-25
     Route: 048
  5. YAZ [Suspect]
  6. PHENTERMINE [Concomitant]
     Dosage: 30 MG, UNK
     Route: 048

REACTIONS (1)
  - CHOLECYSTECTOMY [None]
